FAERS Safety Report 4724555-2 (Version None)
Quarter: 2005Q3

REPORT INFORMATION
  Report Type: 
  Country: None (occurrence: None)
  Receive Date: 20050726
  Receipt Date: 20050719
  Transmission Date: 20060218
  Serious: Yes (Hospitalization, Other)
  Sender: FDA-Public Use
  Company Number: US-BRISTOL-MYERS SQUIBB COMPANY-13044078

PATIENT
  Age: 55 Year
  Sex: Female
  Weight: 104 kg

DRUGS (6)
  1. CETUXIMAB [Suspect]
     Indication: CERVIX CARCINOMA
     Dosage: INITIAL TX DATE: 02-JUN-05 AT 400 MG/M2, ACTUAL DOSE: 800 MG. ACTUAL DOSE THIS INFUSION: 500 MG
     Route: 042
     Dates: start: 20050609, end: 20050609
  2. CISPLATIN [Suspect]
     Indication: CERVIX CARCINOMA
     Dosage: ACTUAL DOSE: 60 MG
     Route: 042
     Dates: start: 20050602, end: 20050602
  3. EFFEXOR [Concomitant]
     Indication: DEPRESSION
     Route: 048
     Dates: start: 20020101
  4. LEXAPRO [Concomitant]
     Indication: DEPRESSION
     Route: 048
     Dates: start: 20021110
  5. WELLBUTRIN [Concomitant]
     Indication: DEPRESSION
     Route: 048
     Dates: start: 20021110
  6. XANAX [Concomitant]
     Indication: ANXIETY
     Route: 048
     Dates: start: 20031110

REACTIONS (5)
  - CONSTIPATION [None]
  - DIARRHOEA [None]
  - DYSPNOEA [None]
  - FATIGUE [None]
  - PULMONARY EMBOLISM [None]
